FAERS Safety Report 15553240 (Version 1)
Quarter: 2018Q4

REPORT INFORMATION
  Report Type: Report from Study
  Country: CL (occurrence: CL)
  Receive Date: 20181026
  Receipt Date: 20181026
  Transmission Date: 20190205
  Serious: Yes (Other)
  Sender: FDA-Public Use
  Company Number: CL-ROCHE-2203245

PATIENT
  Age: 62 Year
  Sex: Female

DRUGS (4)
  1. INSULIN [Concomitant]
     Active Substance: INSULIN NOS
     Route: 058
  2. GLIBENCLAMIDE [Concomitant]
     Active Substance: GLYBURIDE
     Indication: DIABETES MELLITUS
     Route: 048
  3. ACTEMRA [Suspect]
     Active Substance: TOCILIZUMAB
     Indication: RHEUMATOID ARTHRITIS
     Route: 042
     Dates: start: 20131113
  4. INSULIN [Concomitant]
     Active Substance: INSULIN NOS
     Indication: DIABETES MELLITUS
     Route: 042

REACTIONS (2)
  - Blood triglycerides increased [Recovered/Resolved]
  - Diabetic metabolic decompensation [Recovered/Resolved]

NARRATIVE: CASE EVENT DATE: 201806
